FAERS Safety Report 23379244 (Version 1)
Quarter: 2024Q1

REPORT INFORMATION
  Report Type: Spontaneous
  Country: US (occurrence: None)
  Receive Date: 20240107
  Receipt Date: 20240107
  Transmission Date: 20240410
  Serious: Yes (unspecified)
  Sender: FDA-Public Use
  Company Number: None

PATIENT
  Age: 71 Year
  Sex: Female
  Weight: 78.75 kg

DRUGS (10)
  1. RHOPRESSA [Suspect]
     Active Substance: NETARSUDIL MESYLATE
     Indication: Glaucoma
     Dosage: OTHER QUANTITY : 1 DROP(S);?FREQUENCY : 4 TIMES A DAY;?
     Route: 047
     Dates: start: 20231214, end: 20231214
  2. LATANOPROST [Concomitant]
     Active Substance: LATANOPROST
  3. Metropolol Succ [Concomitant]
  4. Olmesartan Medoxomil-hctz 2 [Concomitant]
  5. AMLODIPINE [Concomitant]
     Active Substance: AMLODIPINE BESYLATE
  6. Hydrocodone-Acet. [Concomitant]
  7. VITAMIN D [Concomitant]
     Active Substance: VITAMIN D NOS
  8. VITAMIN B12 [Concomitant]
     Active Substance: CYANOCOBALAMIN
  9. FISH OIL [Concomitant]
     Active Substance: FISH OIL
  10. MINERALS\VITAMINS [Concomitant]
     Active Substance: MINERALS\VITAMINS

REACTIONS (4)
  - Ocular hyperaemia [None]
  - Eye swelling [None]
  - Eyelid margin crusting [None]
  - Lacrimation increased [None]

NARRATIVE: CASE EVENT DATE: 20231214
